FAERS Safety Report 19956978 (Version 2)
Quarter: 2021Q4

REPORT INFORMATION
  Report Type: Spontaneous
  Country: FR (occurrence: FR)
  Receive Date: 20211014
  Receipt Date: 20211029
  Transmission Date: 20220304
  Serious: Yes (Death, Life-Threatening, Hospitalization, Other)
  Sender: FDA-Public Use
  Company Number: FR-EMA-DD-20211001-SHAIK_I-113946

PATIENT
  Age: 5 Year
  Sex: Female
  Weight: 17 kg

DRUGS (10)
  1. SEVOFLURANE [Suspect]
     Active Substance: SEVOFLURANE
     Indication: Induction of anaesthesia
     Dosage: 5 PERCENT
     Route: 065
  2. MIDAZOLAM [Suspect]
     Active Substance: MIDAZOLAM
     Indication: Maintenance of anaesthesia
     Dosage: 0.1 MILLIGRAM/KILOGRAM/HR
     Route: 065
  3. SUFENTANIL [Suspect]
     Active Substance: SUFENTANIL
     Indication: Maintenance of anaesthesia
     Route: 065
  4. SUFENTANIL [Suspect]
     Active Substance: SUFENTANIL
     Indication: Induction of anaesthesia
  5. KETAMINE [Suspect]
     Active Substance: KETAMINE
     Indication: Induction of anaesthesia
     Dosage: 1 MILLIGRAM/KILOGRAM
     Route: 065
  6. bosantan [Concomitant]
     Indication: Pulmonary arterial hypertension
     Route: 065
  7. TREPROSTINIL [Concomitant]
     Active Substance: TREPROSTINIL
     Indication: Pulmonary arterial hypertension
     Dosage: 31 NG/KG/MIN
     Route: 065
  8. ATRACURIUM BESYLATE [Concomitant]
     Active Substance: ATRACURIUM BESYLATE
     Indication: Muscle relaxant therapy
     Dosage: UNK
     Route: 065
  9. ROCURONIUM BROMIDE [Concomitant]
     Active Substance: ROCURONIUM BROMIDE
     Indication: Muscle relaxant therapy
     Dosage: UNK
     Route: 065
  10. SILDENAFIL [Concomitant]
     Active Substance: SILDENAFIL
     Indication: Pulmonary arterial hypertension
     Route: 065

REACTIONS (6)
  - Multiple organ dysfunction syndrome [Fatal]
  - Cardiac perforation [Unknown]
  - Anaphylactic reaction [Unknown]
  - Cardiac arrest [Recovered/Resolved]
  - Haematoma [Unknown]
  - Medical device change [Unknown]
